FAERS Safety Report 11562644 (Version 1)
Quarter: 2015Q3

REPORT INFORMATION
  Report Type: Spontaneous
  Country: RU (occurrence: RU)
  Receive Date: 20150928
  Receipt Date: 20150928
  Transmission Date: 20151125
  Serious: Yes (Other)
  Sender: FDA-Public Use
  Company Number: RU-GLAXOSMITHKLINE-RU2015GSK137140

PATIENT

DRUGS (1)
  1. AVAMYS [Suspect]
     Active Substance: FLUTICASONE FUROATE
     Indication: PRODUCT USED FOR UNKNOWN INDICATION
     Dosage: UNK

REACTIONS (6)
  - Bacterial rhinitis [Unknown]
  - Decreased immune responsiveness [Unknown]
  - Nasal mucosal ulcer [Unknown]
  - Bloody discharge [Unknown]
  - Epistaxis [Unknown]
  - Sinusitis bacterial [Unknown]
